FAERS Safety Report 24789736 (Version 1)
Quarter: 2024Q4

REPORT INFORMATION
  Report Type: Report from Study
  Country: BY (occurrence: BY)
  Receive Date: 20241230
  Receipt Date: 20241230
  Transmission Date: 20250115
  Serious: Yes (Death)
  Sender: MYLAN
  Company Number: BY-MYLANLABS-2024M1116532

PATIENT
  Age: 55 Year
  Sex: Male
  Weight: 69.5 kg

DRUGS (6)
  1. PRETOMANID [Suspect]
     Active Substance: PRETOMANID
     Indication: Tuberculosis
     Dosage: 200 MILLIGRAM, QD (OD PO)
     Route: 048
     Dates: start: 20230427, end: 20231011
  2. BEDAQUILINE [Suspect]
     Active Substance: BEDAQUILINE
     Indication: Tuberculosis
     Dosage: 400 MILLIGRAM, QD (OD PO FOR 2 WEEKS)
     Route: 048
     Dates: start: 20230427
  3. BEDAQUILINE [Suspect]
     Active Substance: BEDAQUILINE
     Dosage: 200 MILLIGRAM, 3XW (TIW PO)
     Route: 048
     Dates: end: 20231011
  4. LINEZOLID [Suspect]
     Active Substance: LINEZOLID
     Indication: Tuberculosis
     Dosage: 600 MILLIGRAM, QD (OD PO FOR 112 DOSES)
     Route: 048
     Dates: start: 20230427
  5. LINEZOLID [Suspect]
     Active Substance: LINEZOLID
     Dosage: 300 MILLIGRAM, QD
     Route: 065
     Dates: end: 20231011
  6. CLOFAZIMINE [Suspect]
     Active Substance: CLOFAZIMINE
     Indication: Tuberculosis
     Dosage: 100 MILLIGRAM, QD (OD PO)
     Route: 048
     Dates: start: 20230427, end: 20231011

REACTIONS (1)
  - Alcohol poisoning [Fatal]

NARRATIVE: CASE EVENT DATE: 20240721
